FAERS Safety Report 5216602-9 (Version None)
Quarter: 2006Q4

REPORT INFORMATION
  Report Type: 
  Country: None (occurrence: None)
  Receive Date: 20061130
  Receipt Date: 20060807
  Transmission Date: 20070319
  Serious: Yes (Hospitalization)
  Sender: FDA-Public Use
  Company Number: US200608002427

PATIENT
  Age: 53 Year
  Sex: Male
  Weight: 122.4 kg

DRUGS (1)
  1. ZYPREXA [Suspect]
     Indication: ANXIETY DISORDER
     Dates: start: 19970101, end: 19990101

REACTIONS (2)
  - CARDIAC FAILURE [None]
  - DIABETES MELLITUS [None]
